FAERS Safety Report 15351292 (Version 16)
Quarter: 2023Q2

REPORT INFORMATION
  Report Type: Spontaneous
  Country: US (occurrence: US)
  Receive Date: 20180905
  Receipt Date: 20230607
  Transmission Date: 20230722
  Serious: Yes (Other)
  Sender: FDA-Public Use
  Company Number: US-PFIZER INC-2018354616

PATIENT
  Age: 70 Year
  Sex: Male

DRUGS (1)
  1. XELJANZ XR [Suspect]
     Active Substance: TOFACITINIB CITRATE
     Dosage: 11 MG, 1X/DAY
     Route: 048

REACTIONS (13)
  - Blindness [Not Recovered/Not Resolved]
  - Foot fracture [Unknown]
  - Ankle fracture [Unknown]
  - Drug dependence [Unknown]
  - Myocardial infarction [Unknown]
  - Wrong technique in product usage process [Unknown]
  - Malaise [Unknown]
  - Hypoacusis [Not Recovered/Not Resolved]
  - Pain in extremity [Unknown]
  - Frustration tolerance decreased [Unknown]
  - Fatigue [Unknown]
  - Infection susceptibility increased [Unknown]
  - Stress [Unknown]

NARRATIVE: CASE EVENT DATE: 20220201
